FAERS Safety Report 24918343 (Version 2)
Quarter: 2025Q2

REPORT INFORMATION
  Report Type: Spontaneous
  Country: US (occurrence: US)
  Receive Date: 20250203
  Receipt Date: 20250515
  Transmission Date: 20250717
  Serious: No
  Sender: PFIZER
  Company Number: US-PFIZER INC-202400302777

PATIENT
  Age: 28 Year
  Sex: Female

DRUGS (3)
  1. LITFULO [Suspect]
     Active Substance: RITLECITINIB TOSYLATE
  2. CLOBETASOL [Concomitant]
     Active Substance: CLOBETASOL
  3. NUVARING [Concomitant]
     Active Substance: ETHINYL ESTRADIOL\ETONOGESTREL
     Indication: Contraception

REACTIONS (3)
  - Alopecia [Unknown]
  - Hair growth abnormal [Unknown]
  - Product dose omission issue [Unknown]
